FAERS Safety Report 19270350 (Version 2)
Quarter: 2021Q3

REPORT INFORMATION
  Report Type: Spontaneous
  Country: US (occurrence: US)
  Receive Date: 20210518
  Receipt Date: 20210810
  Transmission Date: 20211014
  Serious: No
  Sender: FDA-Public Use
  Company Number: US-PFIZER INC-2021503763

PATIENT
  Age: 70 Year
  Sex: Female

DRUGS (2)
  1. FULVESTRANT. [Concomitant]
     Active Substance: FULVESTRANT
     Dosage: UNK, MONTHLY
  2. IBRANCE [Suspect]
     Active Substance: PALBOCICLIB
     Dosage: 125 MG
     Dates: start: 20210411

REACTIONS (6)
  - Diplopia [Unknown]
  - Flatulence [Unknown]
  - White blood cell count decreased [Unknown]
  - Faeces soft [Unknown]
  - Alopecia [Unknown]
  - Ear discomfort [Unknown]
